FAERS Safety Report 18036332 (Version 1)
Quarter: 2020Q3

REPORT INFORMATION
  Report Type: Spontaneous
  Country: US (occurrence: US)
  Receive Date: 20200717
  Receipt Date: 20200717
  Transmission Date: 20201103
  Serious: Yes (Other)
  Sender: FDA-Public Use
  Company Number: None

PATIENT
  Age: 63 Year
  Sex: Male
  Weight: 141 kg

DRUGS (13)
  1. DEXAMETHASONE. [Concomitant]
     Active Substance: DEXAMETHASONE
     Dates: start: 20200714
  2. DEXMEDETOMIDINE. [Concomitant]
     Active Substance: DEXMEDETOMIDINE
     Dates: start: 20200714
  3. ENOXAPARIN [Concomitant]
     Active Substance: ENOXAPARIN
     Dates: start: 20200714
  4. REMDESIVIR. [Suspect]
     Active Substance: REMDESIVIR
     Indication: COVID-19
     Route: 042
     Dates: start: 20200714, end: 20200716
  5. CEFTRIAXONE. [Concomitant]
     Active Substance: CEFTRIAXONE
     Dates: start: 20200714
  6. FENTANYL. [Concomitant]
     Active Substance: FENTANYL
     Dates: start: 20200716
  7. ACETAMINOPHEN. [Concomitant]
     Active Substance: ACETAMINOPHEN
     Dates: start: 20200713
  8. AZITHROMYCIN ANHYDROUS. [Concomitant]
     Active Substance: AZITHROMYCIN ANHYDROUS
     Dates: start: 20200714
  9. VASOPRESSIN. [Concomitant]
     Active Substance: VASOPRESSIN
     Dates: start: 20200716
  10. NOREPINEPHRINE. [Concomitant]
     Active Substance: NOREPINEPHRINE
     Dates: start: 20200716
  11. AMLODIPINE [Concomitant]
     Active Substance: AMLODIPINE BESYLATE
     Dates: start: 20200714
  12. PROPOFOL. [Concomitant]
     Active Substance: PROPOFOL
     Dates: start: 20200716
  13. MIDAZOLAM. [Concomitant]
     Active Substance: MIDAZOLAM
     Dates: start: 20200716

REACTIONS (3)
  - Aspartate aminotransferase increased [None]
  - Alanine aminotransferase increased [None]
  - Therapy cessation [None]

NARRATIVE: CASE EVENT DATE: 20200716
